FAERS Safety Report 4354798-1 (Version None)
Quarter: 2004Q2

REPORT INFORMATION
  Report Type: 
  Country: None (occurrence: None)
  Receive Date: 20040507
  Receipt Date: 20040420
  Transmission Date: 20050107
  Serious: Yes (Death, Hospitalization, Other)
  Sender: FDA-Public Use
  Company Number: PHEH2004US04430

PATIENT
  Age: 74 Year
  Sex: Female

DRUGS (1)
  1. GLEEVEC [Suspect]
     Indication: CHRONIC MYELOID LEUKAEMIA
     Dosage: 400 MG, QD
     Route: 048
     Dates: start: 20010101

REACTIONS (9)
  - ABDOMINAL PAIN [None]
  - CHRONIC MYELOID LEUKAEMIA [None]
  - GASTRECTOMY PARTIAL [None]
  - GASTRITIS HAEMORRHAGIC [None]
  - GASTROINTESTINAL ANGIODYSPLASIA [None]
  - GASTROINTESTINAL HAEMORRHAGE [None]
  - MALIGNANT NEOPLASM PROGRESSION [None]
  - PANCREATIC INSUFFICIENCY [None]
  - VOLVULUS OF BOWEL [None]
